FAERS Safety Report 8117309-0 (Version None)
Quarter: 2012Q1

REPORT INFORMATION
  Report Type: 
  Country: None (occurrence: None)
  Receive Date: 20120206
  Receipt Date: 20120126
  Transmission Date: 20120608
  Serious: Yes (Other)
  Sender: FDA-Public Use
  Company Number: BR-ASTRAZENECA-2011SE73422

PATIENT
  Age: 45 Year
  Sex: Male

DRUGS (2)
  1. ATACAND [Suspect]
     Route: 048
  2. ATACAND HCT [Suspect]
     Dosage: 16/5 MG
     Route: 048

REACTIONS (2)
  - HYPERTENSION [None]
  - INFARCTION [None]
